FAERS Safety Report 10253455 (Version 2)
Quarter: 2014Q3

REPORT INFORMATION
  Report Type: Spontaneous
  Country: US (occurrence: US)
  Receive Date: 20140623
  Receipt Date: 20140923
  Transmission Date: 20150326
  Serious: Yes (Hospitalization, Other)
  Sender: FDA-Public Use
  Company Number: US-ELI_LILLY_AND_COMPANY-US201406004288

PATIENT
  Age: 64 Year
  Sex: Male

DRUGS (29)
  1. GABAPENTIN. [Concomitant]
     Active Substance: GABAPENTIN
  2. SINGULAIR [Concomitant]
     Active Substance: MONTELUKAST SODIUM
  3. RANEXA [Concomitant]
     Active Substance: RANOLAZINE
  4. WARFARIN [Concomitant]
     Active Substance: WARFARIN
  5. PANTOPRAZOLE [Concomitant]
     Active Substance: PANTOPRAZOLE SODIUM
  6. ISOSORBIDE MONONITRATE. [Concomitant]
     Active Substance: ISOSORBIDE MONONITRATE
  7. LANTUS [Concomitant]
     Active Substance: INSULIN GLARGINE
     Dosage: UNK, EACH EVENING
  8. VITAMIN D                          /00107901/ [Concomitant]
     Active Substance: ERGOCALCIFEROL
  9. VITAMIN E                          /00110501/ [Concomitant]
  10. LIPITOR [Concomitant]
     Active Substance: ATORVASTATIN CALCIUM
  11. ASPIRIN. [Concomitant]
     Active Substance: ASPIRIN
  12. FISH OIL [Concomitant]
     Active Substance: FISH OIL
  13. PLAVIX [Concomitant]
     Active Substance: CLOPIDOGREL BISULFATE
  14. KLOR-CON [Concomitant]
     Active Substance: POTASSIUM CHLORIDE
  15. FAMOTIDINE. [Concomitant]
     Active Substance: FAMOTIDINE
  16. FERROUS GLUCONATE [Concomitant]
     Active Substance: FERROUS GLUCONATE
  17. TORSEMIDE. [Concomitant]
     Active Substance: TORSEMIDE
  18. FEXOFENADINE HCL W/PSEUDOEPHEDRINE HCL [Concomitant]
  19. CANDESARTAN [Concomitant]
     Active Substance: CANDESARTAN
  20. ADVAIR HFA [Concomitant]
     Active Substance: FLUTICASONE PROPIONATE\SALMETEROL XINAFOATE
  21. HUMALOG [Suspect]
     Active Substance: INSULIN LISPRO
     Indication: TYPE 2 DIABETES MELLITUS
     Dosage: UNK, UNKNOWN
     Route: 058
     Dates: start: 2012
  22. TAMSULOSIN HCL [Concomitant]
     Active Substance: TAMSULOSIN
  23. FINASTERID [Concomitant]
  24. COREG [Concomitant]
     Active Substance: CARVEDILOL
  25. DICYCLOMINE                        /00068601/ [Concomitant]
     Active Substance: DICYCLOMINE HYDROCHLORIDE
  26. VITAMIN C [Concomitant]
     Active Substance: ASCORBIC ACID
  27. HUMALOG [Suspect]
     Active Substance: INSULIN LISPRO
     Indication: TYPE 2 DIABETES MELLITUS
     Dosage: 26 U, PRN
     Route: 065
     Dates: start: 201404
  28. NIACIN. [Concomitant]
     Active Substance: NIACIN
  29. COMBIVENT [Concomitant]
     Active Substance: ALBUTEROL SULFATE\IPRATROPIUM BROMIDE
     Route: 055

REACTIONS (15)
  - Intervertebral disc protrusion [Unknown]
  - Diabetic microangiopathy [Unknown]
  - Myocardial infarction [Unknown]
  - Corneal abrasion [Unknown]
  - Blindness [Unknown]
  - Ligament sprain [Unknown]
  - Haemoglobin decreased [Unknown]
  - Streptococcal infection [Unknown]
  - Cataract [Unknown]
  - Fall [Recovered/Resolved]
  - Neuralgia [Unknown]
  - Blood creatinine increased [Unknown]
  - International normalised ratio increased [Unknown]
  - Transient ischaemic attack [Unknown]
  - Cellulitis [Unknown]

NARRATIVE: CASE EVENT DATE: 201303
